FAERS Safety Report 5691383-3 (Version None)
Quarter: 2008Q2

REPORT INFORMATION
  Report Type: 
  Country: None (occurrence: None)
  Receive Date: 20080402
  Receipt Date: 20080320
  Transmission Date: 20081010
  Serious: Yes (Other)
  Sender: FDA-Public Use
  Company Number: PHEH2008US01580

PATIENT
  Age: 60 Year
  Sex: Male

DRUGS (12)
  1. RADIATION THERAPY [Concomitant]
     Dosage: UNK, RIGHT UPPER HEMITHORAX
     Dates: end: 20030101
  2. RADIATION THERAPY [Concomitant]
     Dosage: UNK, RIGHT HIP
     Dates: end: 20060101
  3. RADIATION THERAPY [Concomitant]
     Dosage: 30 GY RIGHT HUMERUS
     Dates: end: 20070807
  4. RADIATION THERAPY [Concomitant]
     Dosage: UNK, THORACIC/ LUMBAR SPINE
     Dates: end: 20030101
  5. MELPHALAN [Concomitant]
     Dates: start: 20051205, end: 20060224
  6. PREDNISONE TAB [Concomitant]
     Dates: start: 20051205, end: 20060224
  7. VELCADE [Concomitant]
     Dates: start: 20060612, end: 20060828
  8. REVLIMID [Concomitant]
     Dosage: 25 MG, UNK
     Dates: start: 20060928, end: 20070517
  9. REVLIMID [Concomitant]
     Dosage: 25 MG, UNK
     Dates: start: 20070820, end: 20070904
  10. DEXAMETHASONE TAB [Concomitant]
     Dosage: 40 MG, D 1-4, 9-12, 17-20
     Dates: start: 20060928, end: 20070517
  11. DEXAMETHASONE TAB [Concomitant]
     Dosage: 40 MG, D 1-4
     Dates: start: 20070820, end: 20070904
  12. ZOMETA [Suspect]
     Indication: METASTASES TO BONE
     Dosage: 4 MG EVERY 4 WEEKS
     Route: 042
     Dates: start: 20030101, end: 20070820

REACTIONS (13)
  - ANAEMIA [None]
  - BONE DISORDER [None]
  - DEPRESSION [None]
  - DIABETES MELLITUS [None]
  - ERYTHEMA [None]
  - MUCOSAL INFLAMMATION [None]
  - OSTEONECROSIS [None]
  - PAIN [None]
  - PAIN MANAGEMENT [None]
  - RENAL FAILURE CHRONIC [None]
  - SINUSITIS [None]
  - SWELLING [None]
  - TENDERNESS [None]
